FAERS Safety Report 9177060 (Version 1)
Quarter: 2013Q1

REPORT INFORMATION
  Report Type: Spontaneous
  Country: US (occurrence: US)
  Receive Date: 20130321
  Receipt Date: 20130321
  Transmission Date: 20140127
  Serious: No
  Sender: FDA-Public Use
  Company Number: US-PFIZER INC-2013091712

PATIENT
  Age: 76 Year
  Sex: Female

DRUGS (5)
  1. LYRICA [Suspect]
  2. BEXTRA [Suspect]
  3. ARTHROTEC [Suspect]
  4. TEGRETOL [Suspect]
  5. CODEINE [Suspect]

REACTIONS (1)
  - Drug hypersensitivity [Unknown]
